FAERS Safety Report 8507951-7 (Version None)
Quarter: 2012Q2

REPORT INFORMATION
  Report Type: 
  Country: None (occurrence: None)
  Receive Date: 20120405
  Receipt Date: 20081128
  Transmission Date: 20120825
  Serious: Yes (Other)
  Sender: FDA-Public Use
  Company Number: PHEH2008US11618

PATIENT
  Sex: Female

DRUGS (1)
  1. RECLAST [Suspect]
     Dosage: INTRAVENOUS
     Route: 042
     Dates: start: 20081112

REACTIONS (8)
  - ACTIVITIES OF DAILY LIVING IMPAIRED [None]
  - NAUSEA [None]
  - OEDEMA PERIPHERAL [None]
  - JOINT SWELLING [None]
  - ARTHRALGIA [None]
  - ORBITAL OEDEMA [None]
  - LIP OEDEMA [None]
  - HYPERSENSITIVITY [None]
